FAERS Safety Report 8828045 (Version 1)
Quarter: 2012Q4

REPORT INFORMATION
  Report Type: Report from Study
  Country: CA (occurrence: CA)
  Receive Date: 20121005
  Receipt Date: 20121005
  Transmission Date: 20130627
  Serious: Yes (Hospitalization)
  Sender: FDA-Public Use
  Company Number: CA-JNJFOC-20120910839

PATIENT
  Sex: Female
  Weight: 113 kg

DRUGS (16)
  1. REMICADE [Suspect]
     Indication: CROHN^S DISEASE
     Route: 042
  2. VITAMIN B12 [Concomitant]
     Route: 065
  3. CYCLOBENZAPRINE [Concomitant]
     Route: 065
  4. IMURAN [Concomitant]
     Route: 065
  5. MIRTAZAPINE [Concomitant]
     Route: 065
  6. VITAMIN D [Concomitant]
     Route: 065
  7. OMEPRAZOLE [Concomitant]
     Route: 065
  8. CLONAZEPAM [Concomitant]
     Route: 065
  9. TYLENOL 3 [Concomitant]
     Route: 065
  10. ALFACALCIDOL [Concomitant]
     Route: 065
  11. XENICAL [Concomitant]
     Route: 065
  12. HYOSCINE BUTYLBROMIDE [Concomitant]
     Route: 065
  13. PREGABALIN [Concomitant]
     Route: 065
  14. PAROXETINE [Concomitant]
     Route: 065
  15. SOLU-CORTEF [Concomitant]
     Indication: PREMEDICATION
     Route: 065
  16. BENADRYL [Concomitant]
     Indication: PREMEDICATION
     Route: 042

REACTIONS (2)
  - Muscle spasms [Unknown]
  - Dizziness [Unknown]
